FAERS Safety Report 11647513 (Version 1)
Quarter: 2015Q4

REPORT INFORMATION
  Report Type: Spontaneous
  Country: US (occurrence: None)
  Receive Date: 20151019
  Receipt Date: 20151019
  Transmission Date: 20160304
  Serious: Yes (Hospitalization)
  Sender: FDA-Public Use
  Company Number: None

PATIENT
  Age: 52 Year
  Sex: Male
  Weight: 96.57 kg

DRUGS (1)
  1. ERBITUX [Suspect]
     Active Substance: CETUXIMAB
     Dosage: LOADING DOSE 100 MG/M2 ON 4/15/15. ?LAST DOSE 6/23/15: 250 MG/M2
     Dates: end: 20150623

REACTIONS (5)
  - Feeling cold [None]
  - Loss of consciousness [None]
  - Myelitis [None]
  - Muscular weakness [None]
  - Migraine [None]

NARRATIVE: CASE EVENT DATE: 20151002
